FAERS Safety Report 5660289-8 (Version None)
Quarter: 2008Q1

REPORT INFORMATION
  Report Type: 
  Country: None (occurrence: None)
  Receive Date: 20080214
  Receipt Date: 20071204
  Transmission Date: 20080703
  Serious: No
  Sender: FDA-Public Use
  Company Number: WAES 0712USA01642

PATIENT
  Sex: Female

DRUGS (4)
  1. ISENTRESS [Suspect]
     Dosage: 400 MG/BID/PO; PO
     Route: 048
  2. FUZEON [Concomitant]
  3. ZERIT [Concomitant]
  4. [THERAPY UNSPECIFIED] [Concomitant]

REACTIONS (1)
  - PSYCHOTIC DISORDER [None]
